FAERS Safety Report 8794093 (Version 2)
Quarter: 2012Q4

REPORT INFORMATION
  Report Type: 
  Country: US (occurrence: US)
  Receive Date: 20120918
  Receipt Date: 20121003
  Transmission Date: 20130627
  Serious: Yes (Other)
  Sender: FDA-Public Use
  Company Number: US-BIOGENIDEC-2012BI037269

PATIENT
  Age: 45 Year
  Sex: Female

DRUGS (1)
  1. TYSABRI [Suspect]
     Indication: MULTIPLE SCLEROSIS
     Route: 042
     Dates: start: 20110816

REACTIONS (23)
  - Anaemia [Not Recovered/Not Resolved]
  - Brain hypoxia [Not Recovered/Not Resolved]
  - Paraesthesia [Not Recovered/Not Resolved]
  - Cytogenetic abnormality [Unknown]
  - Dysgraphia [Unknown]
  - Contusion [Not Recovered/Not Resolved]
  - Musculoskeletal disorder [Recovered/Resolved]
  - Gait disturbance [Not Recovered/Not Resolved]
  - Dehydration [Unknown]
  - Thinking abnormal [Unknown]
  - Blindness [Not Recovered/Not Resolved]
  - Vision blurred [Not Recovered/Not Resolved]
  - Feeling abnormal [Not Recovered/Not Resolved]
  - Abdominal distension [Not Recovered/Not Resolved]
  - Injury [Not Recovered/Not Resolved]
  - Ulcer [Not Recovered/Not Resolved]
  - Feeling of despair [Not Recovered/Not Resolved]
  - Coordination abnormal [Not Recovered/Not Resolved]
  - Insomnia [Unknown]
  - Drug ineffective [Unknown]
  - Malaise [Unknown]
  - Headache [Not Recovered/Not Resolved]
  - Dizziness [Unknown]
